FAERS Safety Report 6037697-9 (Version None)
Quarter: 2009Q1

REPORT INFORMATION
  Report Type: 
  Country: None (occurrence: None)
  Receive Date: 20090113
  Receipt Date: 20090106
  Transmission Date: 20090719
  Serious: Yes (Life-Threatening, Hospitalization)
  Sender: FDA-Public Use
  Company Number: 20085450

PATIENT
  Sex: Male

DRUGS (1)
  1. LIORESAL [Suspect]
     Indication: MUSCLE SPASTICITY
     Dosage: 200 MCG, DAILY, INTRATHECAL
     Route: 037

REACTIONS (10)
  - AFFECTIVE DISORDER [None]
  - COGNITIVE DISORDER [None]
  - CONVULSION [None]
  - DEVICE MALFUNCTION [None]
  - DRUG INEFFECTIVE [None]
  - HYPERTONIA [None]
  - MUSCLE RIGIDITY [None]
  - MUSCLE SPASTICITY [None]
  - UNDERDOSE [None]
  - VOMITING [None]
